FAERS Safety Report 20132062 (Version 1)
Quarter: 2021Q4

REPORT INFORMATION
  Report Type: Spontaneous
  Country: US (occurrence: None)
  Receive Date: 20211130
  Receipt Date: 20211130
  Transmission Date: 20220303
  Serious: No
  Sender: FDA-Public Use
  Company Number: None

PATIENT
  Age: 62 Year
  Sex: Female
  Weight: 96.6 kg

DRUGS (1)
  1. BAMLANIVIMAB\ETESEVIMAB [Suspect]
     Active Substance: BAMLANIVIMAB\ETESEVIMAB
     Indication: COVID-19
     Dosage: OTHER FREQUENCY : ONCE;?
     Route: 041
     Dates: start: 20211126, end: 20211126

REACTIONS (7)
  - Chest discomfort [None]
  - Hypotension [None]
  - Bradycardia [None]
  - Flushing [None]
  - Dizziness [None]
  - Tinnitus [None]
  - Infusion related reaction [None]

NARRATIVE: CASE EVENT DATE: 20211126
